FAERS Safety Report 18499500 (Version 4)
Quarter: 2021Q1

REPORT INFORMATION
  Report Type: Report from Study
  Country: CA (occurrence: CA)
  Receive Date: 20201112
  Receipt Date: 20210208
  Transmission Date: 20210419
  Serious: Yes (Other)
  Sender: FDA-Public Use
  Company Number: CA-JNJFOC-20201023101

PATIENT
  Age: 5 Decade
  Sex: Female
  Weight: 87.8 kg

DRUGS (2)
  1. SIMPONI [Suspect]
     Active Substance: GOLIMUMAB
     Route: 058
  2. SIMPONI [Suspect]
     Active Substance: GOLIMUMAB
     Indication: CROHN^S DISEASE
     Dosage: WILL BE OFF OF SIMPONI FOR 3 MONTHS AS OF OCTOBER 2ND, 2020
     Route: 058
     Dates: start: 20200115

REACTIONS (7)
  - Hysterectomy [Recovering/Resolving]
  - Adverse drug reaction [Unknown]
  - Haematochezia [Unknown]
  - Fallopian tube cyst [Unknown]
  - Endometriosis [Recovering/Resolving]
  - Cyst drainage [Unknown]
  - Arthralgia [Not Recovered/Not Resolved]

NARRATIVE: CASE EVENT DATE: 2020
